FAERS Safety Report 16269159 (Version 1)
Quarter: 2019Q2

REPORT INFORMATION
  Report Type: Spontaneous
  Country: US (occurrence: US)
  Receive Date: 20190503
  Receipt Date: 20190503
  Transmission Date: 20190711
  Serious: Yes (Other)
  Sender: FDA-Public Use
  Company Number: US-RECKITT BENCKISER HEALTHCARE INT LIMITED-RB-84835-2019

PATIENT
  Age: 5 Year
  Sex: Female
  Weight: 27.21 kg

DRUGS (3)
  1. CLARITIN [Concomitant]
     Active Substance: LORATADINE
     Indication: PRODUCT USED FOR UNKNOWN INDICATION
     Dosage: UNK
     Route: 065
     Dates: start: 20190428
  2. MOTRIN [Concomitant]
     Active Substance: IBUPROFEN
     Indication: PRODUCT USED FOR UNKNOWN INDICATION
     Dosage: UNK
     Route: 065
     Dates: start: 20190428
  3. DELSYM [Suspect]
     Active Substance: DEXTROMETHORPHAN
     Indication: PRODUCT USED FOR UNKNOWN INDICATION
     Dosage: PATIENT WAS GIVEN 5 ML AT 8 AM AND THEN ANOTHER 5ML AT 1:30 PM
     Route: 065
     Dates: start: 20190428

REACTIONS (8)
  - Emotional distress [Unknown]
  - Mydriasis [Unknown]
  - Confusional state [Unknown]
  - Toxicity to various agents [Unknown]
  - Dizziness [Unknown]
  - Crying [Unknown]
  - Gait disturbance [Unknown]
  - Overdose [Unknown]

NARRATIVE: CASE EVENT DATE: 20190428
